FAERS Safety Report 8776161 (Version 1)
Quarter: 2012Q4

REPORT INFORMATION
  Report Type: 
  Country: JP (occurrence: JP)
  Receive Date: 20120910
  Receipt Date: 20120910
  Transmission Date: 20130627
  Serious: Yes (Hospitalization)
  Sender: FDA-Public Use
  Company Number: JP-GLAXOSMITHKLINE-B0825037A

PATIENT
  Age: 62 Year
  Sex: Female

DRUGS (6)
  1. VALTREX [Suspect]
     Indication: HERPES ZOSTER
     Dosage: 500MG Twice per day
     Route: 048
     Dates: start: 20120816, end: 20120817
  2. METHYCOBAL [Concomitant]
     Dosage: 1500MCG Three times per day
     Route: 048
  3. SELBEX [Concomitant]
     Dosage: 150MG Three times per day
     Route: 048
  4. CALONAL [Concomitant]
     Dosage: 1800MG Three times per day
     Route: 048
  5. GENTACIN [Concomitant]
     Route: 061
  6. AZUNOL [Concomitant]
     Route: 061

REACTIONS (1)
  - Dysarthria [Not Recovered/Not Resolved]
